FAERS Safety Report 18706351 (Version 1)
Quarter: 2021Q1

REPORT INFORMATION
  Report Type: Spontaneous
  Country: BR (occurrence: BR)
  Receive Date: 20210106
  Receipt Date: 20210106
  Transmission Date: 20210419
  Serious: Yes (Other)
  Sender: FDA-Public Use
  Company Number: BR-SA-2020SA377747

PATIENT

DRUGS (3)
  1. CINACALCET. [Concomitant]
     Active Substance: CINACALCET
     Indication: BONE DISORDER
     Dosage: UNK
  2. SEVELAMER SALT NOT SPECIFIED [Suspect]
     Active Substance: SEVELAMER
     Indication: BONE DISORDER
     Dosage: UNK
  3. CALCIUM CARBONATE. [Concomitant]
     Active Substance: CALCIUM CARBONATE
     Indication: BONE DISORDER
     Dosage: UNK

REACTIONS (7)
  - Ileal perforation [Unknown]
  - Necrosis [Unknown]
  - Ulcer [Unknown]
  - Abdominal pain [Recovered/Resolved]
  - Crystal deposit intestine [Unknown]
  - Intestinal ischaemia [Recovering/Resolving]
  - Large intestine perforation [Unknown]
